FAERS Safety Report 25991526 (Version 2)
Quarter: 2025Q4

REPORT INFORMATION
  Report Type: Spontaneous
  Country: US (occurrence: US)
  Receive Date: 20251103
  Receipt Date: 20251107
  Transmission Date: 20260117
  Serious: Yes (Other)
  Sender: SANOFI AVENTIS
  Company Number: US-SA-2025SA319699

PATIENT
  Age: 40 Year
  Sex: Female
  Weight: 78.912 kg

DRUGS (1)
  1. WAYRILZ [Suspect]
     Active Substance: RILZABRUTINIB
     Indication: Immune thrombocytopenia
     Dosage: 400 MG, BID
     Route: 048
     Dates: start: 20251022

REACTIONS (4)
  - Foreign body in throat [Unknown]
  - Product use complaint [Unknown]
  - Diarrhoea [Unknown]
  - Wrong technique in product usage process [Unknown]

NARRATIVE: CASE EVENT DATE: 20251001
